FAERS Safety Report 4690120-9 (Version None)
Quarter: 2005Q2

REPORT INFORMATION
  Report Type: 
  Country: None (occurrence: None)
  Receive Date: 20050613
  Receipt Date: 20050602
  Transmission Date: 20051028
  Serious: Yes (Hospitalization)
  Sender: FDA-Public Use
  Company Number: MK200506-0034-1

PATIENT
  Age: 30 Year
  Sex: Male

DRUGS (1)
  1. METHADOSE [Suspect]
     Indication: DEPENDENCE
     Dosage: IV AND PO
     Route: 042

REACTIONS (13)
  - ABDOMINAL PAIN [None]
  - ABDOMINAL PAIN UPPER [None]
  - ARTHRALGIA [None]
  - CHEST PAIN [None]
  - INCORRECT ROUTE OF DRUG ADMINISTRATION [None]
  - INTENTIONAL MISUSE [None]
  - MALAISE [None]
  - MYALGIA [None]
  - NAUSEA [None]
  - PETECHIAE [None]
  - PHARYNGOLARYNGEAL PAIN [None]
  - PURPURA [None]
  - VOMITING [None]
